FAERS Safety Report 14845989 (Version 1)
Quarter: 2018Q2

REPORT INFORMATION
  Report Type: Spontaneous
  Country: FR (occurrence: FR)
  Receive Date: 20180504
  Receipt Date: 20180504
  Transmission Date: 20180711
  Serious: Yes (Other)
  Sender: FDA-Public Use
  Company Number: FR-MERCK KGAA-2047179

PATIENT
  Age: 61 Year
  Sex: Female

DRUGS (1)
  1. NOVOTHYROX [Suspect]
     Active Substance: LEVOTHYROXINE SODIUM
     Indication: HYPOTHYROIDISM

REACTIONS (42)
  - Feeling guilty [None]
  - Psychiatric symptom [None]
  - Red blood cell sedimentation rate increased [None]
  - Blood thyroid stimulating hormone decreased [None]
  - Pain [None]
  - Anxiety [None]
  - Irritability [None]
  - Impaired work ability [None]
  - Feeling abnormal [None]
  - Headache [None]
  - Feelings of worthlessness [None]
  - Mean cell haemoglobin increased [Recovered/Resolved]
  - Basophil count decreased [None]
  - Gamma-glutamyltransferase increased [None]
  - Sleep disorder [None]
  - Tachyarrhythmia [None]
  - Ventricular extrasystoles [None]
  - Mood swings [None]
  - Loss of personal independence in daily activities [None]
  - Haemoglobin decreased [Recovered/Resolved]
  - Mean cell volume increased [Recovered/Resolved]
  - Blood potassium increased [None]
  - Arthralgia [None]
  - Mean cell haemoglobin [Recovered/Resolved]
  - Haematocrit decreased [Recovered/Resolved]
  - Infarction [None]
  - Breast cancer [None]
  - Essential thrombocythaemia [None]
  - Oedema peripheral [None]
  - Fatigue [None]
  - Depressed mood [None]
  - Red blood cell count decreased [Recovered/Resolved]
  - C-reactive protein increased [None]
  - Blood urea increased [None]
  - Hyperglycaemia [None]
  - Aspartate aminotransferase increased [None]
  - Apathy [None]
  - Myalgia [None]
  - Gait disturbance [None]
  - Supraventricular extrasystoles [None]
  - Depersonalisation/derealisation disorder [None]
  - Neutrophil count increased [Recovered/Resolved]

NARRATIVE: CASE EVENT DATE: 20170117
